FAERS Safety Report 25290082 (Version 2)
Quarter: 2025Q2

REPORT INFORMATION
  Report Type: Report from Study
  Country: US (occurrence: US)
  Receive Date: 20250510
  Receipt Date: 20250616
  Transmission Date: 20250717
  Serious: No
  Sender: ACADIA PHARMACEUTICALS
  Company Number: US-ACADIA PHARMACEUTICALS INC.-ACA-2025-PIM-005386

PATIENT
  Sex: Female

DRUGS (6)
  1. NUPLAZID [Suspect]
     Active Substance: PIMAVANSERIN TARTRATE
     Indication: Parkinson^s disease psychosis
     Dosage: 34 MILLIGRAM, QD
     Route: 048
  2. NUPLAZID [Suspect]
     Active Substance: PIMAVANSERIN TARTRATE
     Indication: Parkinson^s disease
     Dosage: 10 MILLIGRAM, QD (IN THE MORNING)
     Route: 048
     Dates: start: 20250409
  3. CARBIDOPA\LEVODOPA [Concomitant]
     Active Substance: CARBIDOPA\LEVODOPA
  4. LEVOTHYROXINE [Concomitant]
     Active Substance: LEVOTHYROXINE
  5. CLARITHROMYCIN [Concomitant]
     Active Substance: CLARITHROMYCIN
  6. QUETIAPINE [Concomitant]
     Active Substance: QUETIAPINE

REACTIONS (2)
  - Illusion [Not Recovered/Not Resolved]
  - Confusional state [Not Recovered/Not Resolved]
